FAERS Safety Report 24113860 (Version 1)
Quarter: 2024Q3

REPORT INFORMATION
  Report Type: Spontaneous
  Country: CA (occurrence: CA)
  Receive Date: 20240720
  Receipt Date: 20240720
  Transmission Date: 20241017
  Serious: Yes (Hospitalization, Other)
  Sender: CELLTRION
  Company Number: CA-CELLTRION INC.-2024CA016845

PATIENT

DRUGS (1)
  1. TRASTUZUMAB [Suspect]
     Active Substance: TRASTUZUMAB
     Indication: Breast cancer metastatic
     Dosage: 442.8 MILLIGRAM, 1 EVERY 3 WEEKS
     Route: 042

REACTIONS (3)
  - Fall [Recovered/Resolved]
  - Toxicity to various agents [Recovered/Resolved]
  - Underdose [Unknown]
